FAERS Safety Report 4535312-4 (Version None)
Quarter: 2004Q4

REPORT INFORMATION
  Report Type: 
  Country: None (occurrence: None)
  Receive Date: 20041214
  Receipt Date: 20040920
  Transmission Date: 20050328
  Serious: No
  Sender: FDA-Public Use
  Company Number: 2004237077US

PATIENT
  Sex: Female
  Weight: 90.7 kg

DRUGS (5)
  1. BEXTRA [Suspect]
     Indication: SPINAL OSTEOARTHRITIS
     Dosage: QD, ORAL
     Route: 048
     Dates: start: 20040101
  2. DETROL [Concomitant]
  3. TRAMADOL HCL [Concomitant]
  4. LISINOPRIL AND HYDROCHLOROTHIAZIDE [Concomitant]
  5. TYLENOL [Concomitant]

REACTIONS (4)
  - ARTHRALGIA [None]
  - DIFFICULTY IN WALKING [None]
  - OEDEMA PERIPHERAL [None]
  - TOOTH INJURY [None]
